FAERS Safety Report 8202625-4 (Version None)
Quarter: 2012Q1

REPORT INFORMATION
  Report Type: 
  Country: None (occurrence: None)
  Receive Date: 20120312
  Receipt Date: 20120307
  Transmission Date: 20120608
  Serious: Yes (Hospitalization, Other)
  Sender: FDA-Public Use
  Company Number: US-PFIZER INC-2012061573

PATIENT
  Sex: Female
  Weight: 64.853 kg

DRUGS (3)
  1. PRISTIQ [Suspect]
     Indication: DEPRESSION
     Dosage: 50 MG, 1X/DAY
     Route: 048
     Dates: start: 20100101
  2. FENTANYL [Concomitant]
     Indication: INTERVERTEBRAL DISC PROTRUSION
  3. FENTANYL [Concomitant]
     Indication: BACK DISORDER
     Dosage: 50 UG, UNK

REACTIONS (2)
  - LIMB CRUSHING INJURY [None]
  - ANAEMIA [None]
